FAERS Safety Report 4751770-4 (Version None)
Quarter: 2005Q3

REPORT INFORMATION
  Report Type: 
  Country: None (occurrence: None)
  Receive Date: 20050824
  Receipt Date: 20050817
  Transmission Date: 20060218
  Serious: Yes (Hospitalization)
  Sender: FDA-Public Use
  Company Number: PHBS2005IE11974

PATIENT
  Age: 49 Year
  Sex: Female

DRUGS (2)
  1. LIORESAL [Suspect]
     Route: 048
  2. WARFARIN SODIUM [Concomitant]

REACTIONS (1)
  - INTESTINAL OPERATION [None]
